FAERS Safety Report 21219807 (Version 1)
Quarter: 2022Q3

REPORT INFORMATION
  Report Type: Report from Study
  Country: SE (occurrence: SE)
  Receive Date: 20220817
  Receipt Date: 20220817
  Transmission Date: 20221027
  Serious: Yes (Hospitalization, Other)
  Sender: FDA-Public Use
  Company Number: SE-Accord-267739

PATIENT
  Age: 186 Month
  Sex: Female

DRUGS (3)
  1. QUETIAPINE [Suspect]
     Active Substance: QUETIAPINE
     Indication: Anxiety
     Dosage: 25 MG DAILY
  2. LORAZEPAM [Concomitant]
     Active Substance: LORAZEPAM
  3. CLONIDINE [Concomitant]
     Active Substance: CLONIDINE

REACTIONS (2)
  - Chills [Unknown]
  - Hyperthermia [Recovered/Resolved]
